FAERS Safety Report 10102673 (Version 2)
Quarter: 2014Q2

REPORT INFORMATION
  Report Type: Other
  Country: US (occurrence: US)
  Receive Date: 20140424
  Receipt Date: 20140612
  Transmission Date: 20141212
  Serious: Yes (Hospitalization, Other)
  Sender: FDA-Public Use
  Company Number: US-GSKPPD-2014GSK000222

PATIENT
  Age: 55 Year
  Sex: Male
  Weight: 103.06 kg

DRUGS (4)
  1. AVANDIA [Suspect]
     Indication: DIABETES MELLITUS
     Dosage: DATE OF AVANDIA USE COULD NOT BE CONFIRMED IN RECORDS REVIEWED.
     Route: 048
  2. LIPITOR [Concomitant]
     Route: 048
  3. ACCUPRIL [Concomitant]
     Route: 048
  4. ATENOLOL [Concomitant]
     Route: 048

REACTIONS (1)
  - Myocardial ischaemia [Recovered/Resolved]
